FAERS Safety Report 13141771 (Version 3)
Quarter: 2017Q1

REPORT INFORMATION
  Report Type: Spontaneous
  Country: US (occurrence: US)
  Receive Date: 20170124
  Receipt Date: 20170314
  Transmission Date: 20170428
  Serious: Yes (Hospitalization, Other)
  Sender: FDA-Public Use
  Company Number: US-HORIZON-RAV-0019-2017

PATIENT
  Age: 58 Year
  Sex: Female

DRUGS (3)
  1. LASIX [Concomitant]
     Active Substance: FUROSEMIDE
  2. RAVICTI [Suspect]
     Active Substance: GLYCEROL PHENYLBUTYRATE
     Indication: UREA CYCLE ENZYME DEFICIENCY
     Dosage: 3 ML TID
     Route: 048
     Dates: start: 20160804
  3. INSULIN [Concomitant]
     Active Substance: INSULIN NOS

REACTIONS (12)
  - Swelling face [Unknown]
  - Acute kidney injury [Unknown]
  - Skin infection [Unknown]
  - Hyperammonaemia [Unknown]
  - Blood glucose decreased [Unknown]
  - Blood sodium decreased [Unknown]
  - Gastroenteritis viral [Unknown]
  - Peripheral swelling [Unknown]
  - Cardiac disorder [Unknown]
  - Dyspnoea [Unknown]
  - Fluid retention [Unknown]
  - Hyperkalaemia [Unknown]

NARRATIVE: CASE EVENT DATE: 20170106
